FAERS Safety Report 4512367-4 (Version None)
Quarter: 2004Q4

REPORT INFORMATION
  Report Type: 
  Country: None (occurrence: None)
  Receive Date: 20041123
  Receipt Date: 20041108
  Transmission Date: 20050328
  Serious: Yes (Life-Threatening, Hospitalization)
  Sender: FDA-Public Use
  Company Number: 209693

PATIENT
  Age: 71 Year
  Sex: Female
  Weight: 54 kg

DRUGS (10)
  1. HERCEPTIN [Suspect]
     Indication: BREAST CANCER METASTATIC
     Dosage: SEE IMAGE
     Route: 042
     Dates: start: 20040930, end: 20040930
  2. DOCETAXEL (DOCETAXEL) [Suspect]
     Dosage: SEE IMAGE
     Route: 042
     Dates: start: 20040930
  3. DOCETAXEL (DOCETAXEL) [Suspect]
     Dosage: SEE IMAGE
     Route: 042
     Dates: start: 20041020
  4. ONDANSETRON HCL [Concomitant]
  5. DEXAMETHASONE [Concomitant]
  6. DIMETINDENE (DIMETHINDENE MALEATE) [Concomitant]
  7. RANITIDINE [Concomitant]
  8. METHYLPREDNISOLONE [Concomitant]
  9. AMLODIPINE (AMLODIPINE BESYLATE) [Concomitant]
  10. TRIMETAZIDINE (TRIMETAZIDINE) [Concomitant]

REACTIONS (1)
  - FEBRILE NEUTROPENIA [None]
